FAERS Safety Report 7164852-7 (Version None)
Quarter: 2010Q4

REPORT INFORMATION
  Report Type: 
  Country: None (occurrence: None)
  Receive Date: 20101215
  Receipt Date: 20090518
  Transmission Date: 20110411
  Serious: Yes (Hospitalization)
  Sender: FDA-Public Use
  Company Number: AT-GENENTECH-274065

PATIENT
  Sex: Female
  Weight: 40 kg

DRUGS (73)
  1. BLINDED BEVACIZUMAB [Suspect]
     Indication: DIFFUSE LARGE B-CELL LYMPHOMA
     Dosage: 803 UNK, Q2W
     Route: 042
     Dates: start: 20080624, end: 20080826
  2. CYCLOPHOSPHAMIDE [Suspect]
     Indication: DIFFUSE LARGE B-CELL LYMPHOMA
     Dosage: 803 UNK, Q2W
     Route: 042
     Dates: start: 20080624, end: 20080826
  3. DOXORUBICIN HCL [Suspect]
     Indication: DIFFUSE LARGE B-CELL LYMPHOMA
     Dosage: 803 UNK, Q2W
     Route: 042
     Dates: start: 20080624, end: 20080826
  4. BLINDED PLACEBO [Suspect]
     Indication: DIFFUSE LARGE B-CELL LYMPHOMA
     Dosage: 803 UNK, Q2W
     Route: 042
     Dates: start: 20080624, end: 20080826
  5. PREDNISONE [Suspect]
     Indication: DIFFUSE LARGE B-CELL LYMPHOMA
     Dosage: 803 UNK, Q2W
     Route: 042
     Dates: start: 20080624, end: 20080826
  6. BLINDED RITUXIMAB [Suspect]
     Indication: DIFFUSE LARGE B-CELL LYMPHOMA
     Dosage: 803 UNK, Q2W
     Route: 042
     Dates: start: 20080624, end: 20080826
  7. VINCRISTINE [Suspect]
     Indication: DIFFUSE LARGE B-CELL LYMPHOMA
     Dosage: 803 UNK, Q2W
     Route: 042
     Dates: start: 20080624, end: 20080826
  8. BLINDED BEVACIZUMAB [Suspect]
     Dosage: UNK UNK, UNK
     Route: 042
     Dates: start: 20081009, end: 20081023
  9. CYCLOPHOSPHAMIDE [Suspect]
     Dosage: UNK UNK, UNK
     Route: 042
     Dates: start: 20081009, end: 20081023
  10. DOXORUBICIN HCL [Suspect]
     Dosage: UNK UNK, UNK
     Route: 042
     Dates: start: 20081009, end: 20081023
  11. BLINDED PLACEBO [Suspect]
     Dosage: UNK UNK, UNK
     Route: 042
     Dates: start: 20081009, end: 20081023
  12. PREDNISONE [Suspect]
     Dosage: UNK UNK, UNK
     Route: 042
     Dates: start: 20081009, end: 20081023
  13. BLINDED RITUXIMAB [Suspect]
     Dosage: UNK UNK, UNK
     Route: 042
     Dates: start: 20081009, end: 20081023
  14. VINCRISTINE [Suspect]
     Dosage: UNK UNK, UNK
     Route: 042
     Dates: start: 20081009, end: 20081023
  15. BLINDED BEVACIZUMAB [Suspect]
     Dosage: UNK UNK, UNK
     Route: 042
  16. CYCLOPHOSPHAMIDE [Suspect]
     Dosage: UNK UNK, UNK
     Route: 042
  17. DOXORUBICIN HCL [Suspect]
     Dosage: UNK UNK, UNK
     Route: 042
  18. BLINDED PLACEBO [Suspect]
     Dosage: UNK UNK, UNK
     Route: 042
  19. PREDNISONE [Suspect]
     Dosage: UNK UNK, UNK
     Route: 042
  20. BLINDED RITUXIMAB [Suspect]
     Dosage: UNK UNK, UNK
     Route: 042
  21. VINCRISTINE [Suspect]
     Dosage: UNK UNK, UNK
     Route: 042
  22. RITUXAN [Suspect]
     Indication: DIFFUSE LARGE B-CELL LYMPHOMA
     Dosage: 375 MG/M2, Q2W
     Route: 042
     Dates: start: 20080626, end: 20080826
  23. RITUXAN [Suspect]
     Dosage: 375 MG/M2, UNK
     Route: 042
     Dates: start: 20081009, end: 20081023
  24. RITUXAN [Suspect]
     Dosage: 375 MG/M2, UNK
     Route: 043
  25. CYCLOPHOSPHAMIDE [Suspect]
     Indication: DIFFUSE LARGE B-CELL LYMPHOMA
     Dosage: 50 MG/M2, Q2W
     Route: 042
     Dates: start: 20080625, end: 20081009
  26. DOXORUBICIN HCL [Suspect]
     Indication: DIFFUSE LARGE B-CELL LYMPHOMA
     Dosage: 50 MG/M2, Q2W
     Route: 042
     Dates: start: 20080625, end: 20081009
  27. DOXORUBICIN HCL [Suspect]
     Dosage: UNK
  28. PREDNISONE [Suspect]
     Indication: DIFFUSE LARGE B-CELL LYMPHOMA
     Dosage: 100 MG, Q2W
     Route: 048
     Dates: start: 20080625, end: 20081009
  29. VINCRISTINE [Suspect]
     Indication: DIFFUSE LARGE B-CELL LYMPHOMA
     Dosage: 1.4 MG/M2, Q2W
     Route: 042
     Dates: start: 20080625, end: 20081009
  30. LOVENOX [Concomitant]
     Indication: PRODUCT USED FOR UNKNOWN INDICATION
     Dosage: UNK
     Dates: start: 20080703
  31. PANTOLOC [Concomitant]
     Indication: PRODUCT USED FOR UNKNOWN INDICATION
     Dosage: UNK
     Dates: start: 20080624
  32. HEXORAL [Concomitant]
     Indication: PRODUCT USED FOR UNKNOWN INDICATION
     Dosage: UNK
     Dates: start: 20080624
  33. MYCOSTATIN [Concomitant]
     Indication: PRODUCT USED FOR UNKNOWN INDICATION
     Dosage: UNK
     Dates: start: 20080624
  34. UROSIN [Concomitant]
     Indication: PRODUCT USED FOR UNKNOWN INDICATION
     Dosage: UNK
     Dates: start: 20080624, end: 20090217
  35. MOTILIUM [Concomitant]
     Indication: PRODUCT USED FOR UNKNOWN INDICATION
     Dosage: UNK
     Dates: start: 20080922, end: 20081005
  36. AVELOX [Concomitant]
     Indication: PRODUCT USED FOR UNKNOWN INDICATION
     Dosage: UNK
     Dates: start: 20081207, end: 20081215
  37. ZOVIRAX [Concomitant]
     Indication: PRODUCT USED FOR UNKNOWN INDICATION
     Dosage: UNK
     Dates: start: 20081207, end: 20081215
  38. NEUPOGEN [Concomitant]
     Indication: PRODUCT USED FOR UNKNOWN INDICATION
     Dosage: UNK
     Dates: start: 20081207, end: 20081215
  39. AUGMENTIN [Concomitant]
     Indication: PRODUCT USED FOR UNKNOWN INDICATION
     Dosage: UNK
     Dates: start: 20081211
  40. AMPHOTERICIN B [Concomitant]
     Indication: PRODUCT USED FOR UNKNOWN INDICATION
     Dosage: UNK
     Dates: start: 20081208, end: 20081215
  41. SERACTIL [Concomitant]
     Indication: PRODUCT USED FOR UNKNOWN INDICATION
     Dosage: UNK
     Dates: start: 20081212, end: 20081216
  42. KCL RETARD [Concomitant]
     Indication: PRODUCT USED FOR UNKNOWN INDICATION
     Dosage: UNK
     Dates: start: 20090202
  43. PASPERTIN [Concomitant]
     Indication: PRODUCT USED FOR UNKNOWN INDICATION
     Dosage: UNK
     Dates: start: 20090216
  44. SARGENOR [Concomitant]
     Indication: PRODUCT USED FOR UNKNOWN INDICATION
     Dosage: UNK
     Dates: start: 20090217, end: 20090314
  45. ACETYLCYSTEINE [Concomitant]
     Indication: PRODUCT USED FOR UNKNOWN INDICATION
     Dosage: UNK
     Dates: start: 20081115
  46. KALIORAL [Concomitant]
     Indication: PRODUCT USED FOR UNKNOWN INDICATION
     Dosage: UNK
     Dates: start: 20081116
  47. ELOZELL SPEZIAL [Concomitant]
     Indication: PRODUCT USED FOR UNKNOWN INDICATION
     Dosage: UNK
     Dates: start: 20081116, end: 20081116
  48. ELOMEL [Concomitant]
     Indication: PRODUCT USED FOR UNKNOWN INDICATION
     Dosage: UNK
     Dates: start: 20081115, end: 20090428
  49. PARKEMED [Concomitant]
     Indication: PRODUCT USED FOR UNKNOWN INDICATION
     Dosage: UNK
     Dates: start: 20081114, end: 20081114
  50. LASIX [Concomitant]
     Indication: PRODUCT USED FOR UNKNOWN INDICATION
     Dosage: UNK
     Dates: start: 20090119, end: 20090119
  51. SODIUM CHLORIDE [Concomitant]
     Indication: PRODUCT USED FOR UNKNOWN INDICATION
     Dosage: UNK
     Dates: start: 20090119, end: 20090119
  52. DALACIN [Concomitant]
     Indication: PRODUCT USED FOR UNKNOWN INDICATION
     Dosage: UNK
     Dates: start: 20090217, end: 20090310
  53. CANCIDAS [Concomitant]
     Indication: PRODUCT USED FOR UNKNOWN INDICATION
     Dosage: UNK
     Dates: start: 20090219, end: 20090310
  54. METRONIDAZOLE [Concomitant]
     Indication: PRODUCT USED FOR UNKNOWN INDICATION
     Dosage: UNK
     Dates: start: 20090219, end: 20090302
  55. HALCION [Concomitant]
     Indication: PRODUCT USED FOR UNKNOWN INDICATION
     Dosage: UNK
     Dates: start: 20090514
  56. HALCION [Concomitant]
     Dosage: UNK
     Dates: start: 20090426
  57. POTASSIUM CHLORIDE [Concomitant]
     Indication: PRODUCT USED FOR UNKNOWN INDICATION
     Dosage: UNK
     Dates: start: 20090516
  58. BUSCOPAN [Concomitant]
     Indication: PRODUCT USED FOR UNKNOWN INDICATION
     Dosage: UNK
     Dates: start: 20090630, end: 20090912
  59. ZOFRAN [Concomitant]
     Indication: PRODUCT USED FOR UNKNOWN INDICATION
     Dosage: UNK
     Dates: start: 20090703, end: 20090912
  60. PARACODIN BITARTRATE TAB [Concomitant]
     Indication: PRODUCT USED FOR UNKNOWN INDICATION
     Dosage: UNK
     Dates: start: 20090708, end: 20090912
  61. KYTRIL [Concomitant]
     Indication: PRODUCT USED FOR UNKNOWN INDICATION
     Dosage: UNK
     Dates: start: 20090907
  62. VOLUVEN [Concomitant]
     Indication: PRODUCT USED FOR UNKNOWN INDICATION
     Dosage: 500 ML, UNK
     Dates: start: 20090727, end: 20090727
  63. PASSEDAN [Concomitant]
     Indication: PRODUCT USED FOR UNKNOWN INDICATION
     Dosage: UNK
     Dates: start: 20090801, end: 20090912
  64. PSYCHOPAX [Concomitant]
     Indication: PRODUCT USED FOR UNKNOWN INDICATION
     Dosage: UNK
     Dates: start: 20090801, end: 20090912
  65. STRUCTOKABIVEN [Concomitant]
     Indication: PRODUCT USED FOR UNKNOWN INDICATION
     Dosage: UNK
     Dates: start: 20090705, end: 20090912
  66. SANDOSTATIN [Concomitant]
     Indication: PRODUCT USED FOR UNKNOWN INDICATION
     Dosage: UNK
     Dates: start: 20090719, end: 20090721
  67. SANDOSTATIN [Concomitant]
     Dosage: UNK
     Dates: start: 20090722, end: 20090726
  68. SANDOSTATIN [Concomitant]
     Dosage: UNK
     Dates: start: 20090727, end: 20090731
  69. SANDOSTATIN [Concomitant]
     Dosage: UNK
     Dates: start: 20090801, end: 20090804
  70. SANDOSTATIN [Concomitant]
     Dosage: UNK
     Dates: start: 20090808, end: 20090808
  71. SANDOSTATIN [Concomitant]
     Dosage: UNK
     Dates: start: 20090814, end: 20090814
  72. SANDOSTATIN [Concomitant]
     Dosage: UNK
     Dates: start: 20090815, end: 20090820
  73. SANDOSTATIN [Concomitant]
     Dosage: UNK
     Dates: start: 20090821, end: 20090912

REACTIONS (8)
  - CLOSTRIDIUM TEST POSITIVE [None]
  - DIARRHOEA [None]
  - FEBRILE NEUTROPENIA [None]
  - HAEMATOCHEZIA [None]
  - NEUTROPENIA [None]
  - PANCYTOPENIA [None]
  - RECTAL ULCER [None]
  - SINUSITIS [None]
